FAERS Safety Report 7837095-9 (Version None)
Quarter: 2011Q4

REPORT INFORMATION
  Report Type: 
  Country: None (occurrence: None)
  Receive Date: 20111024
  Receipt Date: 20110304
  Transmission Date: 20120403
  Serious: No
  Sender: FDA-Public Use
  Company Number: US-ABBOTT-11P-163-0709914-00

PATIENT
  Sex: Female
  Weight: 90.8 kg

DRUGS (13)
  1. LUPRON DEPOT [Suspect]
     Indication: ENDOMETRIOSIS
     Route: 058
     Dates: start: 20080101, end: 20110304
  2. OXYCODONE HCL [Concomitant]
     Indication: PAIN MANAGEMENT
     Route: 048
  3. FISH OIL [Concomitant]
     Indication: MEDICAL DIET
     Route: 048
  4. FLEXERIL [Concomitant]
     Indication: MIGRAINE
     Route: 048
  5. SOMA [Concomitant]
     Indication: PAIN MANAGEMENT
     Route: 048
  6. DAYPRO [Concomitant]
     Indication: PAIN MANAGEMENT
     Route: 048
  7. LORAZEPAM [Concomitant]
     Indication: ANXIETY
  8. ALLEGRA [Concomitant]
     Indication: HYPERSENSITIVITY
     Dosage: ONCE A DAY AS NEEDED
     Route: 048
  9. ZOMIG [Concomitant]
     Indication: MIGRAINE
     Route: 048
  10. LORAZEPAM [Concomitant]
     Indication: BIPOLAR DISORDER
     Route: 048
  11. TYLENOL-500 [Concomitant]
     Indication: PAIN MANAGEMENT
     Route: 048
  12. NASONEX [Concomitant]
     Indication: HYPERSENSITIVITY
     Route: 045
  13. CALCIUM W/D [Concomitant]
     Indication: MINERAL SUPPLEMENTATION
     Route: 048

REACTIONS (2)
  - IRRITABILITY [None]
  - BONE LOSS [None]
